FAERS Safety Report 14387396 (Version 2)
Quarter: 2018Q1

REPORT INFORMATION
  Report Type: Spontaneous
  Country: CN (occurrence: CN)
  Receive Date: 20180115
  Receipt Date: 20180116
  Transmission Date: 20180509
  Serious: Yes (Other)
  Sender: FDA-Public Use
  Company Number: CN-009507513-1801CHN004603

PATIENT
  Sex: Female

DRUGS (1)
  1. MERCILON [Suspect]
     Active Substance: DESOGESTREL\ETHINYL ESTRADIOL
     Dosage: UNK
     Route: 048

REACTIONS (6)
  - Abortion spontaneous [Unknown]
  - Maternal exposure before pregnancy [Recovered/Resolved]
  - Menstruation delayed [Unknown]
  - Vaginal discharge [Unknown]
  - Menstruation irregular [Unknown]
  - Antidepressant therapy [Unknown]

NARRATIVE: CASE EVENT DATE: 201712
